FAERS Safety Report 10045014 (Version 2)
Quarter: 2014Q2

REPORT INFORMATION
  Report Type: Spontaneous
  Country: US (occurrence: US)
  Receive Date: 20140328
  Receipt Date: 20140404
  Transmission Date: 20141212
  Serious: Yes (Other)
  Sender: FDA-Public Use
  Company Number: US-ALLERGAN-1405762US

PATIENT
  Age: 56 Year
  Sex: Male

DRUGS (1)
  1. BOTOX [Suspect]
     Indication: MIGRAINE
     Dosage: 155 UNITS, SINGLE
     Route: 030
     Dates: start: 20140214, end: 20140214

REACTIONS (3)
  - Appendicectomy [Unknown]
  - Headache [Unknown]
  - Drug ineffective [Unknown]
